FAERS Safety Report 4483466-0 (Version None)
Quarter: 2004Q4

REPORT INFORMATION
  Report Type: 
  Country: None (occurrence: None)
  Receive Date: 20041020
  Receipt Date: 20041014
  Transmission Date: 20050328
  Serious: Yes (Hospitalization)
  Sender: FDA-Public Use
  Company Number: TPA2004A01088

PATIENT
  Age: 49 Year
  Sex: Male
  Weight: 121.1104 kg

DRUGS (2)
  1. PIOGLITAZONE HCL [Suspect]
     Dosage: 1 IN 1 D, PER ORAL
     Route: 048
     Dates: start: 20040823
  2. IBUPROFEN [Concomitant]

REACTIONS (6)
  - ARTHROPOD STING [None]
  - CELLULITIS [None]
  - EYE DISCHARGE [None]
  - EYE OEDEMA [None]
  - HYPERSENSITIVITY [None]
  - VISION BLURRED [None]
